FAERS Safety Report 11143733 (Version 2)
Quarter: 2015Q2

REPORT INFORMATION
  Report Type: Spontaneous
  Country: IT (occurrence: IT)
  Receive Date: 20150528
  Receipt Date: 20150629
  Transmission Date: 20150821
  Serious: Yes (Other)
  Sender: FDA-Public Use
  Company Number: IT-ROCHE-1583129

PATIENT
  Age: 64 Year
  Sex: Male
  Weight: 69 kg

DRUGS (3)
  1. IRINOTECAN [Concomitant]
     Active Substance: IRINOTECAN
     Indication: RECTAL CANCER METASTATIC
     Dosage: ^20 MG/ML 1 BROWN GLASS VIAL, 25 ML
     Route: 042
     Dates: start: 20141022, end: 20150127
  2. AVASTIN [Suspect]
     Active Substance: BEVACIZUMAB
     Indication: RECTAL CANCER METASTATIC
     Dosage: 1 VIAL, 400 MG,CONCENTRATE SOLUTION FOR INFUSION
     Route: 042
     Dates: start: 20141022, end: 20141203
  3. FLUOROURACILE TEVA [Concomitant]
     Active Substance: FLUOROURACIL
     Indication: RECTAL CANCER METASTATIC
     Dosage: ^5 G/100 ML SOLUTION FOR INFUSION^ 1 VIAL, 100 ML
     Route: 042
     Dates: start: 20130715, end: 20150127

REACTIONS (3)
  - Rectal tenesmus [Recovering/Resolving]
  - Rectal haemorrhage [Recovering/Resolving]
  - Anorectal discomfort [Recovering/Resolving]

NARRATIVE: CASE EVENT DATE: 20141203
